FAERS Safety Report 18193891 (Version 1)
Quarter: 2020Q3

REPORT INFORMATION
  Report Type: Spontaneous
  Country: FR (occurrence: FR)
  Receive Date: 20200825
  Receipt Date: 20200825
  Transmission Date: 20201103
  Serious: Yes (Other)
  Sender: FDA-Public Use
  Company Number: FR-PFIZER INC-2020074915

PATIENT
  Age: 53 Year
  Sex: Female

DRUGS (4)
  1. LEXOMIL [Suspect]
     Active Substance: BROMAZEPAM
     Dosage: 6 MG, SINGLE
     Route: 048
     Dates: start: 20200111, end: 20200111
  2. PACLITAXEL. [Suspect]
     Active Substance: PACLITAXEL
     Indication: INVASIVE DUCTAL BREAST CARCINOMA
     Dosage: 1 DF, SINGLE
     Route: 042
     Dates: start: 20200106, end: 20200106
  3. METHYLPREDNISOLONE. [Concomitant]
     Active Substance: METHYLPREDNISOLONE
     Indication: PREMEDICATION
     Dosage: 1 DF, SINGLE
     Route: 042
     Dates: start: 20200106, end: 20200106
  4. ONDANSETRON [Concomitant]
     Active Substance: ONDANSETRON
     Indication: PREMEDICATION
     Dosage: 1 DF, SINGLE
     Route: 042
     Dates: start: 20200106, end: 20200106

REACTIONS (3)
  - Rash [Recovered/Resolved]
  - Transaminases increased [Recovered/Resolved]
  - Rash maculo-papular [Recovered/Resolved]

NARRATIVE: CASE EVENT DATE: 20200112
